FAERS Safety Report 8899365 (Version 1)
Quarter: 2012Q4

REPORT INFORMATION
  Report Type: 
  Country: US (occurrence: US)
  Receive Date: 20121108
  Receipt Date: 20121108
  Transmission Date: 20130627
  Serious: No
  Sender: FDA-Public Use
  Company Number: US-AMGEN-USASP2012032441

PATIENT
  Age: 43 Year
  Sex: Female

DRUGS (1)
  1. ENBREL [Suspect]
     Indication: PSORIASIS
     Dosage: 50 mg, 2 times/wk
     Route: 058
     Dates: start: 20120210, end: 20120508

REACTIONS (4)
  - Guttate psoriasis [Not Recovered/Not Resolved]
  - Rash generalised [Recovering/Resolving]
  - Hypersensitivity [Recovering/Resolving]
  - Infection [Not Recovered/Not Resolved]
